FAERS Safety Report 25751743 (Version 3)
Quarter: 2025Q3

REPORT INFORMATION
  Report Type: Spontaneous
  Country: CN (occurrence: CN)
  Receive Date: 20250902
  Receipt Date: 20250930
  Transmission Date: 20251020
  Serious: Yes (Hospitalization, Other)
  Sender: NOVO NORDISK
  Company Number: CN-NOVOPROD-1508680

PATIENT
  Age: 70 Year
  Sex: Female
  Weight: 81 kg

DRUGS (9)
  1. LANTUS [Suspect]
     Active Substance: INSULIN GLARGINE
     Indication: Type 2 diabetes mellitus
     Dosage: 34 IU, QD
     Route: 058
     Dates: start: 20250801, end: 20250803
  2. LANTUS [Suspect]
     Active Substance: INSULIN GLARGINE
     Dosage: 37 IU, QD (NIGHT)
     Route: 058
     Dates: start: 20250815
  3. NOVORAPID [Suspect]
     Active Substance: INSULIN ASPART
     Dosage: 12 IU, BID (12IU IN THE MORNING AND 12IU IN THE EVENING)
     Route: 058
     Dates: start: 20250815
  4. NOVORAPID [Suspect]
     Active Substance: INSULIN ASPART
     Indication: Type 2 diabetes mellitus
     Dosage: 9 IU, BID
     Route: 058
     Dates: start: 20250801, end: 20250803
  5. CLOPIDOGREL BISULFATE [Concomitant]
     Active Substance: CLOPIDOGREL BISULFATE
     Indication: Cerebral infarction
     Dosage: 75 MG, QD
     Route: 048
     Dates: start: 20211102
  6. VALSARTAN AND HYDROCHLOROTHIAZIDE [Concomitant]
     Active Substance: HYDROCHLOROTHIAZIDE\VALSARTAN
     Indication: Hypertension
     Dosage: 80 MG, QD
     Route: 048
     Dates: start: 20220106
  7. NIFEDIPINE [Concomitant]
     Active Substance: NIFEDIPINE
     Indication: Hypertension
     Dosage: 30 MG, QD
     Route: 048
     Dates: start: 20211102
  8. ATORVASTATIN CALCIUM [Concomitant]
     Active Substance: ATORVASTATIN CALCIUM
     Indication: Arteriosclerosis
     Dosage: 20 MG, QD
     Route: 048
     Dates: start: 20211102
  9. HUANG KUI [Concomitant]
     Indication: Diabetic retinopathy
     Route: 048
     Dates: start: 2022

REACTIONS (4)
  - Cerebrovascular insufficiency [Recovering/Resolving]
  - Respiratory alkalosis [Recovered/Resolved]
  - Neuropathy peripheral [Unknown]
  - Gastritis [Recovering/Resolving]

NARRATIVE: CASE EVENT DATE: 20250801
